FAERS Safety Report 6983328-0 (Version None)
Quarter: 2010Q3

REPORT INFORMATION
  Report Type: 
  Country: None (occurrence: None)
  Receive Date: 20100914
  Receipt Date: 20100729
  Transmission Date: 20110219
  Serious: Yes (Other)
  Sender: FDA-Public Use
  Company Number: US-PFIZER INC-2010095713

PATIENT
  Sex: Female
  Weight: 99.773 kg

DRUGS (3)
  1. LYRICA [Suspect]
     Indication: PAIN IN EXTREMITY
     Dosage: 100 MG, 2X/DAY
     Route: 048
     Dates: start: 20090119
  2. LYRICA [Suspect]
     Indication: MYALGIA
  3. VICODIN [Concomitant]
     Indication: BACK PAIN
     Dosage: UNK; AS NEEDED
     Route: 048

REACTIONS (5)
  - ANXIETY [None]
  - APHASIA [None]
  - DRUG INEFFECTIVE [None]
  - MEMORY IMPAIRMENT [None]
  - THINKING ABNORMAL [None]
